FAERS Safety Report 8886450 (Version 5)
Quarter: 2013Q2

REPORT INFORMATION
  Report Type: Spontaneous
  Country: FR (occurrence: FR)
  Receive Date: 20121105
  Receipt Date: 20130430
  Transmission Date: 20140414
  Serious: Yes (Life-Threatening)
  Sender: FDA-Public Use
  Company Number: FR-GLAXOSMITHKLINE-B0841466A

PATIENT
  Age: 56 Year
  Sex: Male
  Weight: 88 kg

DRUGS (25)
  1. AZANTAC [Suspect]
     Indication: PROPHYLAXIS
     Dosage: 50MG THREE TIMES PER DAY
     Route: 042
     Dates: start: 20121004, end: 20121029
  2. XYZALL [Suspect]
     Indication: ERYTHEMA
     Route: 048
     Dates: start: 20121003, end: 20121021
  3. CETIRIZINE [Suspect]
     Indication: HYPERSENSITIVITY
     Route: 048
     Dates: start: 20121003, end: 20121021
  4. FORTUM [Concomitant]
     Indication: PNEUMONIA
     Dates: start: 201209
  5. COKENZEN [Concomitant]
     Dosage: 1TAB PER DAY
  6. TENORMINE [Concomitant]
     Dosage: 100MG PER DAY
  7. CRESTOR [Concomitant]
     Indication: CORONARY ARTERY DISEASE
     Dosage: 20MG PER DAY
     Route: 048
  8. DELURSAN [Concomitant]
     Dosage: 150MG TWICE PER DAY
  9. GENTAMYCINE [Concomitant]
     Indication: PNEUMONIA
     Dates: start: 201209
  10. CIFLOX [Concomitant]
     Indication: PNEUMONIA
     Dates: start: 201209
  11. PIPERACILLINE [Concomitant]
     Indication: PNEUMONIA
     Dates: start: 201209
  12. AXEPIM [Concomitant]
     Dates: start: 201210
  13. VANCOMYCINE [Concomitant]
     Indication: SEPTIC SHOCK
     Dates: start: 201208
  14. NOZINAN [Concomitant]
     Indication: SEDATION
  15. CATAPRESSAN [Concomitant]
     Indication: SEDATION
  16. ULCAR [Concomitant]
     Indication: PROPHYLAXIS
  17. DEPAKINE [Concomitant]
     Indication: CONVULSION
  18. ASPEGIC [Concomitant]
     Indication: STENT PLACEMENT
  19. DUPHALAC [Concomitant]
     Indication: CONSTIPATION
  20. TIENAM [Concomitant]
     Indication: PNEUMONIA
  21. HYPNOVEL [Concomitant]
     Indication: SEDATION
  22. SUFENTANYL [Concomitant]
     Indication: SEDATION
  23. VALIUM [Concomitant]
  24. MORPHIN [Concomitant]
  25. HEPARIN [Concomitant]

REACTIONS (4)
  - Cardio-respiratory arrest [Recovered/Resolved]
  - Sinus bradycardia [Recovered/Resolved]
  - Sinoatrial block [Recovered/Resolved]
  - Arterial disorder [Recovered/Resolved]
